FAERS Safety Report 25129427 (Version 1)
Quarter: 2025Q1

REPORT INFORMATION
  Report Type: Spontaneous
  Country: HR (occurrence: HR)
  Receive Date: 20250327
  Receipt Date: 20250327
  Transmission Date: 20250408
  Serious: Yes (Other)
  Sender: ASTELLAS
  Company Number: HR-ASTELLAS-2025-AER-015351

PATIENT
  Age: 44 Year
  Sex: Male

DRUGS (5)
  1. XOSPATA [Suspect]
     Active Substance: GILTERITINIB
     Indication: Acute myeloid leukaemia recurrent
     Route: 065
     Dates: start: 20230414
  2. XOSPATA [Suspect]
     Active Substance: GILTERITINIB
     Route: 048
  3. CYCLOPHOSPHAMIDE [Suspect]
     Active Substance: CYCLOPHOSPHAMIDE
     Indication: Prophylaxis
     Route: 065
  4. CYCLOSPORINE [Concomitant]
     Active Substance: CYCLOSPORINE
     Indication: Prophylaxis
     Route: 065
  5. MYCOPHENOLATE MOFETIL [Concomitant]
     Active Substance: MYCOPHENOLATE MOFETIL
     Indication: Prophylaxis
     Route: 065

REACTIONS (5)
  - Graft versus host disease in eye [Unknown]
  - Graft versus host disease oral [Unknown]
  - Cytopenia [Unknown]
  - Thrombocytopenia [Unknown]
  - Cardiotoxicity [Unknown]

NARRATIVE: CASE EVENT DATE: 20240201
